FAERS Safety Report 5990771-5 (Version None)
Quarter: 2008Q4

REPORT INFORMATION
  Report Type: 
  Country: None (occurrence: None)
  Receive Date: 20081209
  Receipt Date: 20081124
  Transmission Date: 20090506
  Serious: Yes (Death)
  Sender: FDA-Public Use
  Company Number: KV200800504

PATIENT
  Age: 78 Year
  Sex: Female
  Weight: 59.9 kg

DRUGS (2)
  1. MORPHINE SULFATE [Suspect]
     Dosage: 15 MG, 1/2 TAB Q4HRS, ORAL
     Route: 048
     Dates: start: 20080806, end: 20080829
  2. LORTAB [Concomitant]

REACTIONS (3)
  - ASTHENIA [None]
  - EATING DISORDER [None]
  - PRODUCT QUALITY ISSUE [None]
